FAERS Safety Report 13462603 (Version 1)
Quarter: 2017Q2

REPORT INFORMATION
  Report Type: Spontaneous
  Country: US (occurrence: US)
  Receive Date: 20170420
  Receipt Date: 20170420
  Transmission Date: 20170830
  Serious: No
  Sender: FDA-Public Use
  Company Number: GXBR2017US000626

PATIENT
  Sex: Female
  Weight: 58.5 kg

DRUGS (1)
  1. OMEPRAZOLE DELAYED RELEASE CAPSULES [Suspect]
     Active Substance: OMEPRAZOLE
     Indication: GASTROOESOPHAGEAL REFLUX DISEASE
     Dosage: 40 MG, QD
     Route: 048
     Dates: start: 2016

REACTIONS (4)
  - Erythema [Unknown]
  - Feeling hot [Unknown]
  - Hypersensitivity [Unknown]
  - Flushing [Unknown]
